FAERS Safety Report 5554440-8 (Version None)
Quarter: 2007Q4

REPORT INFORMATION
  Report Type: 
  Country: None (occurrence: None)
  Receive Date: 20071213
  Receipt Date: 20071210
  Transmission Date: 20080405
  Serious: Yes (Hospitalization, Other)
  Sender: FDA-Public Use
  Company Number: FR-BRISTOL-MYERS SQUIBB COMPANY-14009948

PATIENT
  Age: 64 Year
  Sex: Female

DRUGS (6)
  1. BARACLUDE [Suspect]
     Dates: start: 20070801
  2. MODURETIC 5-50 [Concomitant]
  3. CAPTOPRIL [Concomitant]
  4. ATENOLOL [Concomitant]
  5. AMIKLIN [Concomitant]
     Dates: start: 20071201
  6. ROCEPHIN [Concomitant]
     Dates: start: 20071201

REACTIONS (2)
  - METABOLIC ACIDOSIS [None]
  - OVERDOSE [None]
